FAERS Safety Report 24814287 (Version 1)
Quarter: 2025Q1

REPORT INFORMATION
  Report Type: Report from Study
  Country: BR (occurrence: BR)
  Receive Date: 20250107
  Receipt Date: 20250107
  Transmission Date: 20250409
  Serious: Yes (Death, Hospitalization, Other)
  Sender: AMGEN
  Company Number: BR-AMGEN-BRASL2025000513

PATIENT
  Age: 62 Year
  Sex: Male

DRUGS (1)
  1. VECTIBIX [Suspect]
     Active Substance: PANITUMUMAB
     Indication: Product used for unknown indication
     Route: 065
     Dates: end: 202412

REACTIONS (5)
  - Obstructive shock [Fatal]
  - Deep vein thrombosis [Fatal]
  - Pulmonary embolism [Fatal]
  - Rectal neoplasm [Fatal]
  - Chronic kidney disease [Fatal]
